FAERS Safety Report 4760273-2 (Version None)
Quarter: 2005Q3

REPORT INFORMATION
  Report Type: 
  Country: None (occurrence: None)
  Receive Date: 20050902
  Receipt Date: 20050822
  Transmission Date: 20060218
  Serious: Yes (Hospitalization)
  Sender: FDA-Public Use
  Company Number: ES-ROCHE-414937

PATIENT
  Age: 56 Year
  Sex: Female
  Weight: 80 kg

DRUGS (2)
  1. MYCOPHENOLATE MOFETIL [Suspect]
     Route: 048
     Dates: start: 20050329
  2. TACROLIMUS [Suspect]
     Route: 048
     Dates: start: 20050219

REACTIONS (2)
  - LYMPHOCELE [None]
  - OBSTRUCTIVE UROPATHY [None]
